FAERS Safety Report 8060000-X (Version None)
Quarter: 2012Q1

REPORT INFORMATION
  Report Type: 
  Country: None (occurrence: None)
  Receive Date: 20120120
  Receipt Date: 20120117
  Transmission Date: 20120608
  Serious: Yes (Other)
  Sender: FDA-Public Use
  Company Number: IE-PFIZER INC-2011147282

PATIENT
  Sex: Female

DRUGS (4)
  1. RAMIPRIL [Suspect]
     Indication: HYPERTENSION
     Dosage: 5 MG, 1X/DAY
     Route: 048
     Dates: start: 20110413
  2. NU-SEALS [Concomitant]
     Dosage: UNK
  3. NEXIUM [Concomitant]
     Dosage: UNK
     Dates: start: 20110413
  4. LIPITOR [Concomitant]
     Dosage: UNK
     Dates: start: 20110413

REACTIONS (1)
  - CHEST PAIN [None]
